FAERS Safety Report 11601296 (Version 1)
Quarter: 2015Q4

REPORT INFORMATION
  Report Type: Spontaneous
  Country: US (occurrence: US)
  Receive Date: 20151006
  Receipt Date: 20151006
  Transmission Date: 20160304
  Serious: No
  Sender: FDA-Public Use
  Company Number: US-AMGEN-USASP2015021861

PATIENT
  Age: 90 Year
  Sex: Male

DRUGS (1)
  1. PROLIA [Suspect]
     Active Substance: DENOSUMAB
     Indication: OSTEOPOROSIS
     Dosage: UNK
     Route: 065

REACTIONS (5)
  - Pain in jaw [Unknown]
  - Back pain [Unknown]
  - Eye pain [Unknown]
  - Musculoskeletal chest pain [Unknown]
  - Facial pain [Unknown]

NARRATIVE: CASE EVENT DATE: 201501
